FAERS Safety Report 7409311-9 (Version None)
Quarter: 2011Q2

REPORT INFORMATION
  Report Type: 
  Country: None (occurrence: None)
  Receive Date: 20110412
  Receipt Date: 20110404
  Transmission Date: 20111010
  Serious: Yes (Hospitalization)
  Sender: FDA-Public Use
  Company Number: B0712283A

PATIENT
  Age: 49 Year
  Sex: Female

DRUGS (4)
  1. XANAX [Concomitant]
     Dosage: 1MG TWICE PER DAY
     Route: 048
  2. TRILEPTAL [Concomitant]
     Dosage: 300MG TWICE PER DAY
     Route: 048
  3. LAMICTAL [Suspect]
     Dosage: 100MG TWICE PER DAY
     Route: 048
  4. PROZAC [Concomitant]
     Route: 048

REACTIONS (10)
  - NAUSEA [None]
  - DYSKINESIA [None]
  - SOMNOLENCE [None]
  - MUSCULOSKELETAL STIFFNESS [None]
  - FALL [None]
  - MUSCLE RIGIDITY [None]
  - TARDIVE DYSKINESIA [None]
  - DRUG SCREEN FALSE POSITIVE [None]
  - SWOLLEN TONGUE [None]
  - DISORIENTATION [None]
